FAERS Safety Report 4757801-X (Version None)
Quarter: 2005Q3

REPORT INFORMATION
  Report Type: 
  Country: None (occurrence: None)
  Receive Date: 20050831
  Receipt Date: 20050822
  Transmission Date: 20060218
  Serious: Yes (Hospitalization)
  Sender: FDA-Public Use
  Company Number: 200512808FR

PATIENT
  Age: 56 Year
  Sex: Female

DRUGS (3)
  1. RIFADIN [Suspect]
     Indication: ARTHROPATHY
     Route: 042
     Dates: start: 20050501, end: 20050617
  2. VANCOMYCIN [Suspect]
     Indication: ARTHROPATHY
     Route: 042
     Dates: start: 20050607, end: 20050617
  3. AERIUS [Concomitant]
     Indication: HYPERSENSITIVITY
     Route: 048

REACTIONS (6)
  - ARTHRITIS [None]
  - CARDIAC MURMUR [None]
  - CHILLS [None]
  - JOINT EFFUSION [None]
  - PYREXIA [None]
  - RASH [None]
